FAERS Safety Report 5213566-9 (Version None)
Quarter: 2007Q1

REPORT INFORMATION
  Report Type: 
  Country: None (occurrence: None)
  Receive Date: 20070119
  Receipt Date: 20070111
  Transmission Date: 20070707
  Serious: Yes (Life-Threatening, Disabling)
  Sender: FDA-Public Use
  Company Number: FR-ABBOTT-06P-056-0354165-00

PATIENT
  Sex: Female
  Weight: 2.25 kg

DRUGS (25)
  1. SEVORANE LIQUID FOR INHALATION [Suspect]
     Indication: ANAESTHESIA
     Route: 055
     Dates: start: 20061128, end: 20061128
  2. SEVORANE LIQUID FOR INHALATION [Suspect]
     Route: 055
     Dates: start: 20061124, end: 20061124
  3. DESFLURANE [Suspect]
     Indication: ANAESTHESIA
     Route: 055
     Dates: start: 20061109, end: 20061109
  4. PROPOFOL [Concomitant]
     Indication: ANAESTHESIA
     Route: 042
     Dates: start: 20061109, end: 20061109
  5. PROPOFOL [Concomitant]
     Route: 042
     Dates: start: 20061128, end: 20061128
  6. SUFENTANIL CITRATE [Concomitant]
     Indication: INDUCTION OF ANAESTHESIA
     Route: 042
     Dates: start: 20061128, end: 20061128
  7. SUFENTANIL CITRATE [Concomitant]
     Indication: MAINTENANCE OF ANAESTHESIA
  8. HYDROXYETHYLAMIDON [Concomitant]
     Indication: DRUG USE FOR UNKNOWN INDICATION
     Route: 042
  9. ALFENTANIL [Concomitant]
     Indication: ANAESTHESIA
     Dates: start: 20061109, end: 20061109
  10. MORPHINE [Concomitant]
     Indication: SPINAL ANAESTHESIA
     Dates: start: 20061128, end: 20061128
  11. ORNIDAZOLE [Concomitant]
     Indication: ANTIBIOTIC PROPHYLAXIS
     Dates: start: 20061128
  12. CEFOTAXIME [Concomitant]
     Indication: ANTIBIOTIC PROPHYLAXIS
     Dates: start: 20061128
  13. OCTREOTIDE ACETATE [Concomitant]
     Indication: DRUG USE FOR UNKNOWN INDICATION
     Dates: start: 20061128
  14. PARACETAMOL [Concomitant]
     Indication: DRUG USE FOR UNKNOWN INDICATION
     Dates: start: 20061128
  15. METRONIDAZOLE [Concomitant]
     Indication: ANTIBIOTIC PROPHYLAXIS
     Dates: start: 20061202
  16. METRONIDAZOLE [Concomitant]
     Indication: PYREXIA
  17. AMIKACIN [Concomitant]
     Indication: ANTIBIOTIC PROPHYLAXIS
     Dates: start: 20061202
  18. AMIKACIN [Concomitant]
     Indication: PYREXIA
  19. VANCOMYCIN [Concomitant]
     Indication: ANTIBIOTIC PROPHYLAXIS
     Dates: start: 20061202
  20. VANCOMYCIN [Concomitant]
     Indication: PYREXIA
  21. FUROSEMIDE [Concomitant]
     Indication: BLOOD PRESSURE MANAGEMENT
     Dates: start: 20061129
  22. NICARDIPINE CHLORHYDRATE [Concomitant]
     Indication: BLOOD PRESSURE MANAGEMENT
     Dates: start: 20061129
  23. GLUCAGON [Concomitant]
     Indication: DRUG USE FOR UNKNOWN INDICATION
     Dates: start: 20061127
  24. DIAZOXIDE [Concomitant]
     Indication: DRUG USE FOR UNKNOWN INDICATION
  25. PHYTOMENADIONE [Concomitant]
     Indication: DRUG USE FOR UNKNOWN INDICATION

REACTIONS (13)
  - ALANINE AMINOTRANSFERASE INCREASED [None]
  - BLOOD CREATINE PHOSPHOKINASE INCREASED [None]
  - COAGULATION FACTOR DECREASED [None]
  - CYTOLYTIC HEPATITIS [None]
  - DISSEMINATED INTRAVASCULAR COAGULATION [None]
  - HAEMATEMESIS [None]
  - HEPATIC FAILURE [None]
  - HYPERGLYCAEMIA [None]
  - LIVER DISORDER [None]
  - METABOLIC ACIDOSIS [None]
  - OEDEMA [None]
  - PYREXIA [None]
  - RHABDOMYOLYSIS [None]
